FAERS Safety Report 25602139 (Version 2)
Quarter: 2025Q3

REPORT INFORMATION
  Report Type: Spontaneous
  Country: RU (occurrence: RU)
  Receive Date: 20250724
  Receipt Date: 20250801
  Transmission Date: 20251021
  Serious: Yes (Other)
  Sender: Haleon PLC
  Company Number: RU-ORG100013279-032744

PATIENT
  Age: 28 Year
  Sex: Male

DRUGS (2)
  1. TERBINAFINE [Suspect]
     Active Substance: TERBINAFINE
     Indication: Fungal infection
  2. TERBINAFINE [Suspect]
     Active Substance: TERBINAFINE
     Indication: Onychomycosis

REACTIONS (12)
  - Acute generalised exanthematous pustulosis [Unknown]
  - Rash [Recovered/Resolved]
  - Asthenia [Unknown]
  - Somnolence [Unknown]
  - Body temperature increased [Unknown]
  - Soft tissue swelling [Unknown]
  - Fatigue [Unknown]
  - Chills [Unknown]
  - Papule [Unknown]
  - Skin plaque [Unknown]
  - Generalised pustular psoriasis [Unknown]
  - Toxic skin eruption [Unknown]
